FAERS Safety Report 5525896-1 (Version None)
Quarter: 2007Q4

REPORT INFORMATION
  Report Type: 
  Country: None (occurrence: None)
  Receive Date: 20071126
  Receipt Date: 20071122
  Transmission Date: 20080405
  Serious: Yes (Life-Threatening)
  Sender: FDA-Public Use
  Company Number: CN-ASTRAZENECA-2007AP07440

PATIENT
  Age: 25 Year
  Sex: Female

DRUGS (2)
  1. ROPIVACAINE [Suspect]
     Indication: ANAESTHESIA
     Route: 008
  2. LIDOCAINE [Concomitant]
     Indication: ANAESTHESIA
     Route: 008

REACTIONS (1)
  - DRUG TOXICITY [None]
